FAERS Safety Report 9970076 (Version 1)
Quarter: 2014Q1

REPORT INFORMATION
  Report Type: Spontaneous
  Country: US (occurrence: None)
  Receive Date: 20140131
  Receipt Date: 20140131
  Transmission Date: 20141002
  Serious: Yes (Hospitalization)
  Sender: FDA-Public Use
  Company Number: 094793

PATIENT
  Sex: Male
  Weight: 88 kg

DRUGS (5)
  1. KEPPRA [Suspect]
     Indication: CONVULSION
     Dosage: 1500 MG, BID, STRENGTH: 500 MG, 3 TAB QAM AND 3 TAB QPM
  2. DILANTIN /00017401/ [Concomitant]
  3. LYRICA [Concomitant]
  4. PROZAC /00724401/ [Concomitant]
  5. SEROQUEL /01270901/ [Concomitant]

REACTIONS (2)
  - Convulsion [None]
  - Inappropriate schedule of drug administration [None]
